FAERS Safety Report 16277882 (Version 1)
Quarter: 2019Q2

REPORT INFORMATION
  Report Type: Report from Study
  Country: CA (occurrence: CA)
  Receive Date: 20190506
  Receipt Date: 20190506
  Transmission Date: 20190711
  Serious: Yes (Other)
  Sender: FDA-Public Use
  Company Number: CA-EXELIXIS-CABO-19020052

PATIENT
  Age: 61 Year
  Sex: Male

DRUGS (2)
  1. CABOMETYX [Suspect]
     Active Substance: CABOZANTINIB S-MALATE
     Dosage: 60 MG, QD (7DAY ON AND 7 DAY OFF)
     Route: 048
     Dates: start: 201904
  2. CABOMETYX [Suspect]
     Active Substance: CABOZANTINIB S-MALATE
     Indication: METASTATIC RENAL CELL CARCINOMA
     Dosage: 60 MG, QD
     Route: 048
     Dates: start: 20190116, end: 20190310

REACTIONS (11)
  - Fall [Unknown]
  - Cough [Unknown]
  - Thyroid hormones decreased [Unknown]
  - Decreased appetite [Unknown]
  - Hepatotoxicity [Recovered/Resolved]
  - Oral pain [Unknown]
  - Mucosal inflammation [Unknown]
  - Weight decreased [Unknown]
  - Confusional state [Unknown]
  - Malignant neoplasm progression [Unknown]
  - Blood thyroid stimulating hormone increased [Recovered/Resolved]

NARRATIVE: CASE EVENT DATE: 20190219
